FAERS Safety Report 7833455-0 (Version None)
Quarter: 2011Q4

REPORT INFORMATION
  Report Type: 
  Country: None (occurrence: None)
  Receive Date: 20111024
  Receipt Date: 20111004
  Transmission Date: 20120403
  Serious: Yes (Other)
  Sender: FDA-Public Use
  Company Number: AU-B.I. PHARMACEUTICALS,INC./RIDGEFIELD-2011-AU-01421AU

PATIENT
  Sex: Male
  Weight: 91 kg

DRUGS (6)
  1. TOPROL-XL [Concomitant]
     Dosage: 190 MG
  2. PRADAXA [Suspect]
     Indication: CEREBROVASCULAR ACCIDENT PROPHYLAXIS
  3. CARTIA XT [Concomitant]
     Dosage: 1 MANE
  4. ZOCOR [Concomitant]
     Dosage: 20 MG
  5. PRADAXA [Suspect]
     Indication: ATRIAL FIBRILLATION
  6. DIGOXIN [Concomitant]
     Dosage: 250 MCG

REACTIONS (2)
  - HAEMATURIA [None]
  - RENAL NEOPLASM [None]
